FAERS Safety Report 4279355-7 (Version None)
Quarter: 2004Q1

REPORT INFORMATION
  Report Type: 
  Country: None (occurrence: None)
  Receive Date: 20040126
  Receipt Date: 20040126
  Transmission Date: 20041129
  Serious: Yes (Life-Threatening, Hospitalization)
  Sender: FDA-Public Use
  Company Number: None

PATIENT
  Age: 41 Year
  Sex: Male
  Weight: 95.2554 kg

DRUGS (2)
  1. ALLOPURINOL [Suspect]
     Indication: GOUTY TOPHUS
     Dosage: 600MG QDAY ORAL
     Route: 048
     Dates: start: 20030620, end: 20030909
  2. PROBENECID [Suspect]
     Indication: GOUT
     Dosage: 500 MG BID ORAL
     Route: 048
     Dates: start: 20030814, end: 20030909

REACTIONS (8)
  - ACUTE RESPIRATORY FAILURE [None]
  - HEADACHE [None]
  - INFLUENZA LIKE ILLNESS [None]
  - LEUKOPENIA [None]
  - MALAISE [None]
  - PHARYNGOLARYNGEAL PAIN [None]
  - PYREXIA [None]
  - SEPSIS [None]
